FAERS Safety Report 6192921-7 (Version None)
Quarter: 2009Q2

REPORT INFORMATION
  Report Type: 
  Country: None (occurrence: None)
  Receive Date: 20090514
  Receipt Date: 20090504
  Transmission Date: 20091009
  Serious: Yes (Other)
  Sender: FDA-Public Use
  Company Number: CHPA2009US10842

PATIENT
  Age: 72 Year
  Sex: Female

DRUGS (1)
  1. EXCEDRIN (MIGRAINE) [Suspect]
     Indication: ARTHRITIS
     Dosage: 0.5-2 DF, QD, ORAL
     Route: 048
     Dates: start: 19870101

REACTIONS (2)
  - HYPERTENSION [None]
  - INTENTIONAL DRUG MISUSE [None]
